FAERS Safety Report 13755699 (Version 1)
Quarter: 2017Q3

REPORT INFORMATION
  Report Type: Spontaneous
  Country: US (occurrence: US)
  Receive Date: 20170714
  Receipt Date: 20170714
  Transmission Date: 20171127
  Serious: Yes (Other)
  Sender: FDA-Public Use
  Company Number: None

PATIENT
  Age: 71 Year
  Sex: Female

DRUGS (1)
  1. IBRANCE [Suspect]
     Active Substance: PALBOCICLIB
     Indication: BREAST CANCER
     Dosage: 100MG QD X 3 WEEK OFF X  WEKK BY MOUTH
     Route: 048
     Dates: start: 20170531

REACTIONS (3)
  - Dizziness [None]
  - Depression [None]
  - Memory impairment [None]

NARRATIVE: CASE EVENT DATE: 20170707
